FAERS Safety Report 23098664 (Version 1)
Quarter: 2023Q4

REPORT INFORMATION
  Report Type: Spontaneous
  Country: EG (occurrence: EG)
  Receive Date: 20231023
  Receipt Date: 20231023
  Transmission Date: 20240110
  Serious: Yes (Other)
  Sender: FDA-Public Use
  Company Number: EG-AMGEN-EGYSP2023184066

PATIENT

DRUGS (3)
  1. TRASTUZUMAB [Suspect]
     Active Substance: TRASTUZUMAB
     Indication: Breast cancer
     Dosage: UNK
     Route: 065
  2. BEVACIZUMAB [Suspect]
     Active Substance: BEVACIZUMAB
     Indication: Cervix carcinoma
     Dosage: UNK
     Route: 065
  3. BEVACIZUMAB [Suspect]
     Active Substance: BEVACIZUMAB
     Indication: Renal cell carcinoma

REACTIONS (19)
  - Uveitis [Unknown]
  - Embolism [Unknown]
  - Heliotrope rash [Unknown]
  - Polychondritis [Unknown]
  - Genital ulceration [Unknown]
  - Butterfly rash [Unknown]
  - Ill-defined disorder [Unknown]
  - Rash [Unknown]
  - Vasculitic rash [Unknown]
  - Skin tightness [Unknown]
  - Dysphagia [Unknown]
  - Raynaud^s phenomenon [Unknown]
  - Dry mouth [Unknown]
  - Dry eye [Unknown]
  - Arthritis [Unknown]
  - Arthralgia [Unknown]
  - Myositis [Unknown]
  - Mouth ulceration [Unknown]
  - Myalgia [Unknown]
